FAERS Safety Report 15860952 (Version 2)
Quarter: 2019Q1

REPORT INFORMATION
  Report Type: Spontaneous
  Country: DE (occurrence: DE)
  Receive Date: 20190124
  Receipt Date: 20190205
  Transmission Date: 20190417
  Serious: Yes (Other)
  Sender: FDA-Public Use
  Company Number: DE-TEVA-2019-DE-1001546

PATIENT
  Age: 75 Year
  Sex: Male

DRUGS (2)
  1. BICALUTAMID-RATIOPHARM 50 MG FILMTABLETTEN [Suspect]
     Active Substance: BICALUTAMIDE
     Dosage: RECEIVED SINCE 90 DAYS
     Route: 048
     Dates: start: 2018
  2. XARELTA [Concomitant]
     Indication: ATRIAL FIBRILLATION

REACTIONS (3)
  - Nipple pain [Unknown]
  - Nipple enlargement [Unknown]
  - Arrhythmia [Unknown]

NARRATIVE: CASE EVENT DATE: 201901
